FAERS Safety Report 22347581 (Version 1)
Quarter: 2023Q2

REPORT INFORMATION
  Report Type: Spontaneous
  Country: DK (occurrence: None)
  Receive Date: 20230522
  Receipt Date: 20230522
  Transmission Date: 20230721
  Serious: Yes (Life-Threatening, Hospitalization)
  Sender: FDA-Public Use
  Company Number: 2023A114040

PATIENT
  Age: 58 Year
  Sex: Female

DRUGS (21)
  1. DAPAGLIFLOZIN [Suspect]
     Active Substance: DAPAGLIFLOZIN
     Indication: Diabetes mellitus
     Dosage: STRENGTH: 10 MG
     Route: 048
     Dates: start: 20170621, end: 20230506
  2. AMLODIPINE [Concomitant]
     Active Substance: AMLODIPINE BESYLATE
     Indication: Hypertension
     Dosage: STRENGTH: 5 MG.
     Route: 048
     Dates: start: 20161110
  3. ZINC [Concomitant]
     Active Substance: ZINC
     Indication: Mineral supplementation
     Dosage: STRENGTH: 22 MG.
     Route: 048
     Dates: start: 20220829
  4. THIAMINE [Concomitant]
     Active Substance: THIAMINE
     Indication: Vitamin supplementation
     Dosage: STRENGTH: 300 MG.
     Route: 048
     Dates: start: 20171128
  5. ACETAMINOPHEN [Concomitant]
     Active Substance: ACETAMINOPHEN
     Indication: Pain
     Dosage: STRENGTH: 500 MG. DOSAGE: 1000 MG AS NECESSARY, EVERY 8TH HOUR.
     Route: 048
     Dates: start: 20141111
  6. IBUPROFEN [Concomitant]
     Active Substance: IBUPROFEN
     Indication: Pain
     Dosage: STRENGTH: 600 MG. DOSAGE: 600 MG AS NECESSARY, MAX. 3 TIMES DAILY.
     Route: 048
     Dates: start: 20220830
  7. INSULIN GLARGINE [Concomitant]
     Active Substance: INSULIN GLARGINE
     Indication: Diabetes mellitus
     Dosage: STRENGTH: 100 UNITS/ML
     Dates: start: 20220804
  8. FURIX [Concomitant]
     Indication: Hypertension
     Dosage: STRENGTH: 40 MG.
     Route: 048
  9. CREON [Concomitant]
     Active Substance: PANCRELIPASE AMYLASE\PANCRELIPASE LIPASE\PANCRELIPASE PROTEASE
     Indication: Enzyme supplementation
     Dosage: STRENGTH: LIPASE 25.000 EP-E
     Route: 048
     Dates: start: 20220829
  10. MELATONIN [Concomitant]
     Active Substance: MELATONIN
     Indication: Insomnia
     Dosage: STRENGTH: 3 MG.
     Route: 048
     Dates: start: 20220802
  11. PREGABALIN ^ACCORD^ [Concomitant]
     Indication: Anxiety
     Dosage: STRENGTH: 150 MG.
     Route: 048
     Dates: start: 20200127
  12. MAGNESIUM [Concomitant]
     Active Substance: MAGNESIUM
     Indication: Blood magnesium decreased
     Dosage: STRENGTH: 360 MG.
     Route: 048
     Dates: start: 20220805
  13. KALIUMKLORID ^ORIFARM^ [Concomitant]
     Indication: Mineral supplementation
     Dosage: STRENGTH: 750 MG.
     Route: 048
     Dates: start: 20151228
  14. ALPRAZOLAM [Concomitant]
     Active Substance: ALPRAZOLAM
     Indication: Anxiety
     Dosage: STRENGTH: 0.25 MG DOSAGE: 0.25 MG AS NECESSARY, MAX. 2 TIMES DAILY.
     Route: 048
     Dates: start: 20151016
  15. ROSUVASTATIN ^KRKA D.D.^ [Concomitant]
     Indication: Cardiovascular event prophylaxis
     Dosage: STRENGTH: 10 MG.
     Route: 048
     Dates: start: 20210112
  16. CHLORDIAZEPOXIDE [Concomitant]
     Active Substance: CHLORDIAZEPOXIDE
     Indication: Sedative therapy
     Dosage: STRENGTH: 25 MG.
     Route: 048
     Dates: start: 20221202
  17. CALCIUM\CHOLECALCIFEROL [Concomitant]
     Active Substance: CALCIUM\CHOLECALCIFEROL
     Indication: Mineral supplementation
     Dosage: STRENGTH: 500 MG+10 MICROGRAMS.
     Route: 048
     Dates: start: 20220802
  18. BUDESONIDE\FORMOTEROL FUMARATE [Concomitant]
     Active Substance: BUDESONIDE\FORMOTEROL FUMARATE
     Indication: Asthma
     Dosage: STRENGTH: 9+320 MICROGRAM/DOSE
     Route: 055
     Dates: start: 20220805
  19. METFORMIN [Concomitant]
     Active Substance: METFORMIN HYDROCHLORIDE
     Indication: Type 2 diabetes mellitus
     Dosage: STRENGTH: 500 MG.
     Route: 048
     Dates: start: 20220825
  20. DISULFIRAM [Concomitant]
     Active Substance: DISULFIRAM
     Indication: Abstains from alcohol
     Dosage: STRENGTH: 400 MG.
     Route: 048
     Dates: start: 20171010
  21. PANTOPRAZOLE SODIUM [Concomitant]
     Active Substance: PANTOPRAZOLE SODIUM
     Indication: Gastric ulcer
     Dosage: STRENGTH: 40 MG.
     Route: 048

REACTIONS (4)
  - Nausea [Recovered/Resolved]
  - Vomiting [Recovered/Resolved]
  - Diarrhoea [Recovered/Resolved]
  - Diabetic ketoacidosis [Recovered/Resolved]

NARRATIVE: CASE EVENT DATE: 20230504
